FAERS Safety Report 18231986 (Version 4)
Quarter: 2020Q4

REPORT INFORMATION
  Report Type: Spontaneous
  Country: US (occurrence: US)
  Receive Date: 20200904
  Receipt Date: 20201109
  Transmission Date: 20210113
  Serious: Yes (Other)
  Sender: FDA-Public Use
  Company Number: US-PFIZER INC-2020343414

PATIENT
  Age: 75 Year
  Sex: Female
  Weight: 65.76 kg

DRUGS (5)
  1. DAILY VITE [ASCORBIC ACID;CALCIUM PANTOTHENATE;COLECALCIFEROL;CYANOCOB [Concomitant]
     Dosage: UNK
  2. IBRANCE [Suspect]
     Active Substance: PALBOCICLIB
     Dosage: 125 MG, CYCLIC (1 DAILY FOR 21 DAYS/ DAILY FOR 21 DAYS ON, 7 DAYS OFF)
     Route: 048
     Dates: start: 20200808, end: 2020
  3. CALCIUM [Concomitant]
     Active Substance: CALCIUM
     Dosage: UNK
  4. IBRANCE [Suspect]
     Active Substance: PALBOCICLIB
     Indication: BREAST CANCER FEMALE
     Dosage: 125 MG, CYCLIC (1 DAILY FOR 21 DAYS/ DAILY FOR 21 DAYS ON, 7 DAYS OFF)
     Route: 048
     Dates: start: 20200808, end: 2020
  5. VITAMIN B12 [Concomitant]
     Active Substance: CYANOCOBALAMIN
     Dosage: UNK

REACTIONS (5)
  - White blood cell count decreased [Unknown]
  - Fatigue [Unknown]
  - Neuropathy peripheral [Unknown]
  - Blood test abnormal [Unknown]
  - Alopecia [Not Recovered/Not Resolved]

NARRATIVE: CASE EVENT DATE: 2020
